FAERS Safety Report 23278475 (Version 1)
Quarter: 2023Q4

REPORT INFORMATION
  Report Type: Other
  Country: CA (occurrence: CA)
  Receive Date: 20231208
  Receipt Date: 20231208
  Transmission Date: 20240110
  Serious: Yes (Hospitalization)
  Sender: FDA-Public Use
  Company Number: CA-GE HEALTHCARE-2023CSU011300

PATIENT
  Age: 37 Year
  Sex: Female

DRUGS (3)
  1. OMNIPAQUE [Suspect]
     Active Substance: IOHEXOL
     Indication: Diagnostic procedure
     Dosage: 50 MG, SINGLE
     Route: 014
  2. OMNIPAQUE [Suspect]
     Active Substance: IOHEXOL
     Indication: Neck pain
  3. EPIPEN [Concomitant]
     Active Substance: EPINEPHRINE
     Dosage: UNK

REACTIONS (7)
  - Dysphagia [Recovered/Resolved]
  - Pallor [Recovered/Resolved]
  - Atopy [Recovered/Resolved]
  - Throat tightness [Recovered/Resolved]
  - Lip oedema [Recovered/Resolved]
  - Erythema [Recovered/Resolved]
  - Nausea [Recovered/Resolved]
